FAERS Safety Report 20722682 (Version 2)
Quarter: 2022Q3

REPORT INFORMATION
  Report Type: Spontaneous
  Country: JP (occurrence: JP)
  Receive Date: 20220419
  Receipt Date: 20220819
  Transmission Date: 20221027
  Serious: Yes (Death)
  Sender: FDA-Public Use
  Company Number: JP-JNJFOC-20220429151

PATIENT
  Age: 54 Year
  Sex: Male
  Weight: 64.4 kg

DRUGS (6)
  1. DARZALEX [Suspect]
     Active Substance: DARATUMUMAB
     Indication: Plasma cell leukaemia
     Dosage: DOSE UNKNOWN
     Route: 041
     Dates: start: 20181017, end: 20190320
  2. REVLIMID [Concomitant]
     Active Substance: LENALIDOMIDE
     Indication: Plasma cell leukaemia
     Route: 048
     Dates: start: 20180131, end: 20191204
  3. LENADEX [Concomitant]
     Active Substance: DEXAMETHASONE ACETATE
     Indication: Plasma cell leukaemia
     Route: 048
     Dates: start: 20171227, end: 20200205
  4. POLARAMINE [Concomitant]
     Active Substance: DEXCHLORPHENIRAMINE MALEATE
     Indication: Premedication
     Route: 041
     Dates: start: 20181017, end: 20190320
  5. ACETAMINOPHEN [Concomitant]
     Active Substance: ACETAMINOPHEN
     Indication: Premedication
     Route: 041
     Dates: start: 20181017, end: 20190320
  6. PRANLUKAST [Concomitant]
     Active Substance: PRANLUKAST
     Indication: Premedication
     Route: 048
     Dates: start: 20181017, end: 20190320

REACTIONS (4)
  - Plasma cell leukaemia [Fatal]
  - Upper respiratory tract inflammation [Recovered/Resolved]
  - Product use in unapproved indication [Unknown]
  - Off label use [Unknown]

NARRATIVE: CASE EVENT DATE: 20181017
